FAERS Safety Report 10209780 (Version 1)
Quarter: 2014Q2

REPORT INFORMATION
  Report Type: Spontaneous
  Country: DE (occurrence: DE)
  Receive Date: 20140602
  Receipt Date: 20140602
  Transmission Date: 20141212
  Serious: Yes (Hospitalization)
  Sender: FDA-Public Use
  Company Number: DE-AMGEN-DEUSP2014039492

PATIENT
  Age: 62 Year
  Sex: Female

DRUGS (9)
  1. XGEVA [Suspect]
     Indication: BREAST CANCER METASTATIC
     Dosage: 120 MG, Q4WK
     Route: 058
     Dates: start: 201211, end: 201307
  2. OXYCODON [Concomitant]
     Route: 065
  3. BELOC                              /00030002/ [Concomitant]
     Route: 065
  4. NEXIUM                             /01479302/ [Concomitant]
     Route: 065
  5. TAVOR                              /00273201/ [Concomitant]
     Route: 065
  6. AQUAPHOR                           /00298701/ [Concomitant]
     Route: 065
  7. LASIX                              /00032601/ [Concomitant]
     Route: 065
  8. ARIMIDEX [Concomitant]
     Route: 065
  9. MOVICOL                            /01625101/ [Concomitant]
     Route: 065

REACTIONS (2)
  - Osteonecrosis of jaw [Unknown]
  - Cardiac failure [Unknown]
